FAERS Safety Report 8825916 (Version 5)
Quarter: 2013Q4

REPORT INFORMATION
  Report Type: Report from Study
  Country: JP (occurrence: JP)
  Receive Date: 20121005
  Receipt Date: 20131010
  Transmission Date: 20140711
  Serious: Yes (Death, Hospitalization, Other)
  Sender: FDA-Public Use
  Company Number: JP-AMGEN-JPNCT2012063293

PATIENT
  Age: 89 Year
  Sex: Male
  Weight: 54 kg

DRUGS (14)
  1. DARBEPOETIN ALFA [Suspect]
     Indication: NEPHROGENIC ANAEMIA
     Dosage: 60 MUG, QD
     Route: 058
     Dates: start: 20110428, end: 20120830
  2. ADALAT CR [Concomitant]
     Indication: NEPHROSCLEROSIS
     Dosage: UNK
     Route: 048
  3. ARTIST [Concomitant]
     Indication: NEPHROSCLEROSIS
     Dosage: UNK
     Route: 048
  4. MICARDIS [Concomitant]
     Indication: NEPHROSCLEROSIS
     Dosage: UNK
     Route: 048
  5. LASIX [Concomitant]
     Indication: NEPHROSCLEROSIS
     Dosage: UNK
     Route: 048
  6. OPALMON [Concomitant]
     Dosage: UNK
     Route: 048
  7. TERNELIN [Concomitant]
     Dosage: UNK
     Route: 048
  8. MUCOSTA [Concomitant]
     Dosage: UNK
     Route: 048
  9. NEUROTROPIN [Concomitant]
     Dosage: UNK
     Route: 048
  10. ADOFEED [Concomitant]
     Dosage: UNK
     Route: 062
  11. UREPEARL [Concomitant]
     Dosage: UNK
     Route: 061
  12. ONEALFA [Concomitant]
     Indication: NEPHROSCLEROSIS
     Dosage: UNK
     Route: 048
  13. SODIUM BICARBONATE [Concomitant]
     Indication: NEPHROSCLEROSIS
     Dosage: UNK
     Route: 048
  14. AMOBAN [Concomitant]
     Dosage: UNK
     Route: 048

REACTIONS (7)
  - Azotaemia [Fatal]
  - Cardiac failure [Fatal]
  - Pneumonia [Not Recovered/Not Resolved]
  - Blood pressure increased [Recovered/Resolved]
  - Oedema [Recovered/Resolved]
  - Hyperkalaemia [Recovered/Resolved]
  - Arthritis [Recovered/Resolved]
